FAERS Safety Report 15021033 (Version 10)
Quarter: 2019Q2

REPORT INFORMATION
  Report Type: Report from Study
  Country: JP (occurrence: JP)
  Receive Date: 20180618
  Receipt Date: 20190404
  Transmission Date: 20190711
  Serious: Yes (Hospitalization)
  Sender: FDA-Public Use
  Company Number: JP-EISAI MEDICAL RESEARCH-EC-2018-041271

PATIENT
  Age: 67 Year
  Sex: Female
  Weight: 39 kg

DRUGS (32)
  1. ETODOLAC. [Concomitant]
     Active Substance: ETODOLAC
  2. KETOPROFEN. [Concomitant]
     Active Substance: KETOPROFEN
  3. AMLODIPINE [Concomitant]
     Active Substance: AMLODIPINE BESYLATE
  4. ALBUMIN TANNATE [Concomitant]
     Active Substance: ALBUMIN BOVINE\TANNIC ACID
  5. MAGNESIUM OXIDE. [Concomitant]
     Active Substance: MAGNESIUM OXIDE
  6. PEMBROLIZUMAB. [Suspect]
     Active Substance: PEMBROLIZUMAB
     Indication: CLEAR CELL RENAL CELL CARCINOMA
     Route: 041
     Dates: start: 20180419, end: 20180531
  7. OXYCONTIN TR [Concomitant]
  8. LAC-B [Concomitant]
     Active Substance: BIFIDOBACTERIUM SPP.
  9. RANMARK [Concomitant]
     Active Substance: DENOSUMAB
  10. JANUVIA [Concomitant]
     Active Substance: SITAGLIPTIN PHOSPHATE
  11. LENVATINIB [Suspect]
     Active Substance: LENVATINIB
     Route: 048
     Dates: start: 20180524, end: 20180610
  12. AZUNOL GARGLE [Concomitant]
  13. LENVATINIB [Suspect]
     Active Substance: LENVATINIB
     Route: 048
     Dates: start: 20180507, end: 20180516
  14. ALFACALCIDOL [Concomitant]
     Active Substance: ALFACALCIDOL
  15. DENOTAS [Concomitant]
     Active Substance: CALCIUM CARBONATE\CHOLECALCIFEROL\MAGNESIUM CARBONATE
  16. CALONAL [Concomitant]
     Active Substance: ACETAMINOPHEN
  17. LANSOPRAZOLE. [Concomitant]
     Active Substance: LANSOPRAZOLE
  18. KERATINAMIN [Concomitant]
     Active Substance: UREA
  19. LENVATINIB [Suspect]
     Active Substance: LENVATINIB
     Indication: CLEAR CELL RENAL CELL CARCINOMA
     Route: 048
     Dates: start: 20180419, end: 20180428
  20. LENVATINIB [Suspect]
     Active Substance: LENVATINIB
     Route: 048
     Dates: start: 20180706, end: 20180822
  21. ASPARA-CA [Concomitant]
     Active Substance: CALCIUM ASPARTATE
  22. ZOLPIDEM [Concomitant]
     Active Substance: ZOLPIDEM\ZOLPIDEM TARTRATE
  23. PIOGLITAZONE. [Concomitant]
     Active Substance: PIOGLITAZONE
  24. MOHRUS TAPE [Concomitant]
     Active Substance: KETOPROFEN
  25. NOVAMIN [Concomitant]
  26. THYRADIN S [Concomitant]
     Active Substance: LEVOTHYROXINE SODIUM
  27. OXINORM [Concomitant]
  28. PREDNISOLONE. [Concomitant]
     Active Substance: PREDNISOLONE
  29. DAIPHEN [Concomitant]
     Active Substance: SULFAMETHOXAZOLE\TRIMETHOPRIM
  30. SHIMBUTO [Concomitant]
     Active Substance: HERBALS
  31. GLIMEPIRIDE. [Concomitant]
     Active Substance: GLIMEPIRIDE
  32. HIRUDOID [Concomitant]
     Active Substance: GLYCOSAMINOGLYCANS

REACTIONS (2)
  - Enterocolitis [Recovering/Resolving]
  - Cancer pain [Recovering/Resolving]

NARRATIVE: CASE EVENT DATE: 20180611
